FAERS Safety Report 20945232 (Version 1)
Quarter: 2022Q2

REPORT INFORMATION
  Report Type: Spontaneous
  Country: US (occurrence: None)
  Receive Date: 20220609
  Receipt Date: 20220609
  Transmission Date: 20220721
  Serious: Yes (Other)
  Sender: FDA-Public Use
  Company Number: None

PATIENT
  Age: 83 Year
  Sex: Female
  Weight: 75.2 kg

DRUGS (2)
  1. DOXORUBICIN [Suspect]
     Active Substance: DOXORUBICIN
     Indication: Ovarian cancer metastatic
     Dosage: OTHER FREQUENCY : CHEMOTHERAPY CYCLE?
     Route: 042
     Dates: start: 20220421, end: 20220421
  2. HERCEPTIN [Concomitant]
     Active Substance: TRASTUZUMAB
     Dates: start: 20220421, end: 20220421

REACTIONS (3)
  - Chills [None]
  - Nausea [None]
  - Headache [None]

NARRATIVE: CASE EVENT DATE: 20220421
